FAERS Safety Report 8837971 (Version 1)
Quarter: 2012Q4

REPORT INFORMATION
  Report Type: 
  Country: NO (occurrence: NO)
  Receive Date: 20121012
  Receipt Date: 20121012
  Transmission Date: 20130627
  Serious: Yes (Other)
  Sender: FDA-Public Use
  Company Number: NO-JNJFOC-20121004214

PATIENT
  Age: 59 Year
  Sex: Female

DRUGS (9)
  1. SIMPONI [Suspect]
     Indication: RHEUMATOID ARTHRITIS
     Route: 058
     Dates: start: 201009
  2. METHOTREXATE [Concomitant]
     Route: 065
     Dates: start: 201009
  3. FOLIC ACID [Concomitant]
     Route: 065
     Dates: start: 201009
  4. BRICANYL TURBUHALER [Concomitant]
     Route: 065
  5. SERETIDE DISCUS [Concomitant]
     Route: 065
  6. ZANIDIP [Concomitant]
     Route: 065
  7. FLUVASTATIN [Concomitant]
     Route: 065
  8. FOSAMAX [Concomitant]
     Route: 065
  9. CALCIGRAN FORTE [Concomitant]
     Route: 065

REACTIONS (1)
  - Ventricular tachycardia [Unknown]
